FAERS Safety Report 25318788 (Version 2)
Quarter: 2025Q3

REPORT INFORMATION
  Report Type: Spontaneous
  Country: CA (occurrence: CA)
  Receive Date: 20250515
  Receipt Date: 20250714
  Transmission Date: 20251021
  Serious: Yes (Hospitalization, Other)
  Sender: PFIZER
  Company Number: CA-PFIZER INC-202500080266

PATIENT
  Age: 74 Year
  Sex: Female

DRUGS (10)
  1. RUXIENCE [Suspect]
     Active Substance: RITUXIMAB-PVVR
     Indication: Rheumatoid arthritis
     Route: 042
     Dates: start: 20220302, end: 20220316
  2. RUXIENCE [Suspect]
     Active Substance: RITUXIMAB-PVVR
     Route: 042
     Dates: start: 20230118, end: 20230201
  3. RUXIENCE [Suspect]
     Active Substance: RITUXIMAB-PVVR
     Route: 042
     Dates: start: 20231005, end: 20231020
  4. RUXIENCE [Suspect]
     Active Substance: RITUXIMAB-PVVR
     Route: 042
     Dates: start: 20240410, end: 20240424
  5. RUXIENCE [Suspect]
     Active Substance: RITUXIMAB-PVVR
     Route: 042
     Dates: start: 20241105
  6. RUXIENCE [Suspect]
     Active Substance: RITUXIMAB-PVVR
     Route: 042
     Dates: start: 20241120
  7. ASPIRIN [Concomitant]
     Active Substance: ASPIRIN
     Indication: Blood pressure abnormal
  8. ATORVASTATIN [Concomitant]
     Active Substance: ATORVASTATIN
  9. TYLENOL [Concomitant]
     Active Substance: ACETAMINOPHEN
     Indication: Arthritis
     Dosage: 650 MG, 3X/DAY
  10. INFLUENZA VIRUS VACCINE [Concomitant]
     Active Substance: INFLUENZA VIRUS VACCINE

REACTIONS (4)
  - Hypertension [Unknown]
  - Heart rate increased [Unknown]
  - Oxygen saturation decreased [Unknown]
  - Immune system disorder [Unknown]

NARRATIVE: CASE EVENT DATE: 20250511
